FAERS Safety Report 5466524-3 (Version None)
Quarter: 2007Q3

REPORT INFORMATION
  Report Type: 
  Country: None (occurrence: None)
  Receive Date: 20070925
  Receipt Date: 20070919
  Transmission Date: 20080115
  Serious: Yes (Life-Threatening, Hospitalization)
  Sender: FDA-Public Use
  Company Number: CA-NOVOPROD-267685

PATIENT
  Sex: Male
  Weight: 100 kg

DRUGS (10)
  1. NOVOSEVEN [Suspect]
     Indication: TRAUMATIC HAEMORRHAGE
     Dosage: 3 DOSES
     Route: 042
     Dates: start: 20070916, end: 20070917
  2. ZANTAC [Concomitant]
     Indication: GASTRIC ULCER
     Dosage: 50 MG, TID
     Route: 042
     Dates: start: 20070917
  3. FRAGMIN [Concomitant]
     Indication: THROMBOSIS PROPHYLAXIS
     Dosage: 5000 IU, QD
     Route: 058
     Dates: start: 20070917
  4. KEFZOL [Concomitant]
     Indication: INFECTION PROPHYLAXIS
     Dosage: 2 G, TID
     Route: 042
     Dates: start: 20070917
  5. GENTAMYCIN                         /00047101/ [Concomitant]
     Indication: INFECTION PROPHYLAXIS
     Dosage: 120 MG, BID
     Route: 042
     Dates: start: 20070917
  6. PROPOFOL [Concomitant]
     Indication: SEDATION
     Dosage: 300 MG, UNK
     Route: 042
     Dates: start: 20070917
  7. FENTANYL [Concomitant]
     Indication: PAIN
     Dosage: 50-200 MG/H
     Route: 042
     Dates: start: 20070917
  8. VERSED [Concomitant]
     Indication: SEDATION
     Dosage: 2 MG/HR
     Route: 042
     Dates: start: 20070917
  9. HUMULIN 70/30 [Concomitant]
     Indication: HYPERGLYCAEMIA
     Dosage: 0-8 UNITS/HR
     Route: 042
     Dates: start: 20070917
  10. MAGNESIUM SULFATE [Concomitant]
     Indication: MINERAL SUPPLEMENTATION
     Dosage: 1 G, QD
     Route: 042
     Dates: start: 20070917, end: 20070917

REACTIONS (1)
  - VERTEBRAL INJURY [None]
